FAERS Safety Report 17523869 (Version 4)
Quarter: 2020Q2

REPORT INFORMATION
  Report Type: Report from Study
  Country: US (occurrence: US)
  Receive Date: 20200310
  Receipt Date: 20200402
  Transmission Date: 20200713
  Serious: Yes (Hospitalization, Other)
  Sender: FDA-Public Use
  Company Number: US-ACTELION-A-NJ2018-174668

PATIENT
  Age: 56 Year
  Sex: Female
  Weight: 98 kg

DRUGS (23)
  1. UPTRAVI [Suspect]
     Active Substance: SELEXIPAG
     Dosage: 600 MCG, BID
     Route: 048
     Dates: start: 20180806
  2. FERROUS SULFATE. [Concomitant]
     Active Substance: FERROUS SULFATE
     Dosage: UNK
     Dates: start: 20171004
  3. UPTRAVI [Suspect]
     Active Substance: SELEXIPAG
     Dosage: 1200 MCG, BID
     Route: 048
  4. OPSUMIT [Suspect]
     Active Substance: MACITENTAN
     Indication: PULMONARY ARTERIAL HYPERTENSION
     Dosage: UNK
     Route: 048
     Dates: start: 20180421
  5. OXYGEN. [Concomitant]
     Active Substance: OXYGEN
     Dosage: UNK
     Dates: start: 2003
  6. XOPENEX [Concomitant]
     Active Substance: LEVALBUTEROL HYDROCHLORIDE
  7. HYQVIA [Concomitant]
     Active Substance: HUMAN IMMUNOGLOBULIN G\HYALURONIDASE RECOMBINANT HUMAN
     Dosage: UNK
     Dates: start: 200911
  8. TYLENOL [Concomitant]
     Active Substance: ACETAMINOPHEN
     Dosage: UNK, PRN
     Dates: start: 2009
  9. SUCRALFATE. [Concomitant]
     Active Substance: SUCRALFATE
  10. UPTRAVI [Suspect]
     Active Substance: SELEXIPAG
     Dosage: 1000 UNK, BID
     Route: 048
  11. OMEPRAZOLE. [Concomitant]
     Active Substance: OMEPRAZOLE
     Dosage: UNK
     Dates: start: 2009
  12. PREDNISONE. [Concomitant]
     Active Substance: PREDNISONE
     Dosage: UNK
     Dates: start: 200911
  13. MUPIROCIN. [Concomitant]
     Active Substance: MUPIROCIN
  14. ADCIRCA [Concomitant]
     Active Substance: TADALAFIL
     Dosage: UNK
     Dates: start: 2006
  15. KLOR-CON [Concomitant]
     Active Substance: POTASSIUM CHLORIDE
     Dosage: UNK
     Dates: start: 201003
  16. BENADRYL [Concomitant]
     Active Substance: DIPHENHYDRAMINE HYDROCHLORIDE
     Dosage: UNK
     Dates: start: 200911
  17. UPTRAVI [Suspect]
     Active Substance: SELEXIPAG
     Indication: PULMONARY ARTERIAL HYPERTENSION
     Dosage: 1000 MCG, BID
     Route: 048
     Dates: start: 20180423
  18. UPTRAVI [Suspect]
     Active Substance: SELEXIPAG
     Dosage: 1000 MCG, BID
     Route: 048
     Dates: start: 20190920
  19. SPIRONOLACTONE. [Concomitant]
     Active Substance: SPIRONOLACTONE
     Dosage: UNK
     Dates: start: 2010
  20. MOMETASONE [Concomitant]
     Active Substance: MOMETASONE
  21. LASIX [Concomitant]
     Active Substance: FUROSEMIDE
     Dosage: UNK
     Dates: start: 200903
  22. SYNTHROID [Concomitant]
     Active Substance: LEVOTHYROXINE SODIUM
     Dosage: UNK
     Dates: start: 2002
  23. IMODIUM [Concomitant]
     Active Substance: LOPERAMIDE HYDROCHLORIDE

REACTIONS (37)
  - Anaemia [Recovering/Resolving]
  - Chest pain [Recovering/Resolving]
  - Perirectal abscess [Recovering/Resolving]
  - Abscess drainage [Recovering/Resolving]
  - Abdominal pain upper [Unknown]
  - Renal failure [Unknown]
  - Haemoglobin decreased [Recovering/Resolving]
  - Haematocrit decreased [Recovering/Resolving]
  - Transfusion [Unknown]
  - Chills [Recovering/Resolving]
  - Atelectasis [Recovering/Resolving]
  - Pancreatic cyst [Unknown]
  - Haemorrhoid operation [Unknown]
  - Musculoskeletal pain [Unknown]
  - Headache [Recovering/Resolving]
  - Malaise [Unknown]
  - Nausea [Unknown]
  - Dyspnoea [Recovering/Resolving]
  - Cardiomegaly [Recovering/Resolving]
  - Red blood cell count decreased [Recovered/Resolved]
  - Weight decreased [Unknown]
  - Muscular weakness [Unknown]
  - Oesophageal variceal ligation [Unknown]
  - Pyrexia [Unknown]
  - Haemorrhoids [Recovering/Resolving]
  - Argon plasma coagulation [Unknown]
  - Viral infection [Unknown]
  - Chest discomfort [Unknown]
  - Haemorrhoidal haemorrhage [Recovering/Resolving]
  - Migraine [Recovering/Resolving]
  - Cough [Recovering/Resolving]
  - Diaphragmatic disorder [Recovering/Resolving]
  - Arteriovenous malformation [Unknown]
  - Pneumonia [Recovering/Resolving]
  - Body temperature increased [Unknown]
  - Sinusitis [Recovered/Resolved with Sequelae]
  - Back pain [Unknown]

NARRATIVE: CASE EVENT DATE: 201806
